FAERS Safety Report 4539492-6 (Version None)
Quarter: 2004Q4

REPORT INFORMATION
  Report Type: 
  Country: None (occurrence: None)
  Receive Date: 20041222
  Receipt Date: 20041209
  Transmission Date: 20050328
  Serious: Yes (Other)
  Sender: FDA-Public Use
  Company Number: DE_041114624

PATIENT
  Age: 66 Year
  Sex: Female

DRUGS (10)
  1. FORTEO [Suspect]
     Indication: HYPOPARATHYROIDISM
     Dosage: 20 UG/3 DAY
     Dates: start: 20031120
  2. BONDIOL (ALFACALCIDOL) [Concomitant]
  3. DIHYDROTACHYSTEROL [Concomitant]
  4. KETOPROFEN [Concomitant]
  5. CALCIUM SANDOZ [Concomitant]
  6. LEVOTHYROXINE SODIUM [Concomitant]
  7. VERAPAMIL [Concomitant]
  8. ALLOPURINOL [Concomitant]
  9. PANTOPRAZOLE SODIUM [Concomitant]
  10. MAGNESIUM ^JENAPHARM^ (MAGNESIUM CARBONATE) [Concomitant]

REACTIONS (7)
  - BLOOD CREATINE INCREASED [None]
  - DRUG INEFFECTIVE [None]
  - GOUT [None]
  - HYPERCALCAEMIA [None]
  - HYPOCALCAEMIA [None]
  - MUSCLE CRAMP [None]
  - PHARMACEUTICAL PRODUCT COMPLAINT [None]
